FAERS Safety Report 7693060-6 (Version None)
Quarter: 2011Q3

REPORT INFORMATION
  Report Type: 
  Country: None (occurrence: None)
  Receive Date: 20110819
  Receipt Date: 20110816
  Transmission Date: 20111222
  Serious: No
  Sender: FDA-Public Use
  Company Number: US-PFIZER INC-2011100009

PATIENT
  Sex: Female

DRUGS (3)
  1. LISINOPRIL [Concomitant]
     Dosage: 10 MG, DAILY
  2. LIPITOR [Suspect]
     Indication: BLOOD CHOLESTEROL INCREASED
     Dosage: 20 MG, DAILY
     Route: 048
     Dates: start: 20110401, end: 20110601
  3. PLAVIX [Concomitant]
     Dosage: 75 MG, DAILY

REACTIONS (4)
  - CONSTIPATION [None]
  - FATIGUE [None]
  - MUSCULAR WEAKNESS [None]
  - MUSCLE SPASMS [None]
